FAERS Safety Report 7388013-1 (Version None)
Quarter: 2011Q2

REPORT INFORMATION
  Report Type: 
  Country: None (occurrence: None)
  Receive Date: 20110401
  Receipt Date: 20110321
  Transmission Date: 20111010
  Serious: Yes (Death, Other)
  Sender: FDA-Public Use
  Company Number: US-CELGENEUS-163-21880-11032370

PATIENT
  Sex: Female

DRUGS (6)
  1. POTASSIUM CHLORIDE [Concomitant]
     Route: 065
  2. FUROSEMIDE [Concomitant]
     Route: 065
  3. LORAZEPAM [Concomitant]
     Route: 065
  4. HYDROCODONE BITARTRATE + ACETAMINOPHEN [Concomitant]
     Route: 065
  5. REVLIMID [Suspect]
     Indication: MULTIPLE MYELOMA
     Dosage: 25 MILLIGRAM
     Route: 048
     Dates: start: 20100501
  6. WARFARIN SODIUM [Concomitant]
     Route: 065

REACTIONS (5)
  - MULTIPLE MYELOMA [None]
  - DEATH [None]
  - NAUSEA [None]
  - FATIGUE [None]
  - DECREASED APPETITE [None]
